FAERS Safety Report 23352652 (Version 2)
Quarter: 2024Q1

REPORT INFORMATION
  Report Type: Spontaneous
  Country: NL (occurrence: NL)
  Receive Date: 20231230
  Receipt Date: 20240116
  Transmission Date: 20240410
  Serious: Yes (Hospitalization, Other)
  Sender: FDA-Public Use
  Company Number: None

PATIENT
  Age: 61 Year
  Sex: Female

DRUGS (43)
  1. LEFLUNOMIDE [Suspect]
     Active Substance: LEFLUNOMIDE
     Indication: Rheumatoid arthritis
     Dosage: UNK
     Dates: start: 20231016
  2. HYDROXYCHLOROQUINE SULFATE [Suspect]
     Active Substance: HYDROXYCHLOROQUINE SULFATE
     Indication: Rheumatoid arthritis
     Dosage: UNK
     Dates: start: 20231016
  3. POLYETHYLENE GLYCOLS [Concomitant]
     Active Substance: POLYETHYLENE GLYCOLS
     Dosage: UNK
  4. CYCLOSPORINE [Concomitant]
     Active Substance: CYCLOSPORINE
     Dosage: UNK
  5. ACETAMINOPHEN [Concomitant]
     Active Substance: ACETAMINOPHEN
  6. FLUTICASONE [Concomitant]
     Active Substance: FLUTICASONE
  7. LOSARTAN [Concomitant]
     Active Substance: LOSARTAN
  8. OFLOXACIN [Concomitant]
     Active Substance: OFLOXACIN
  9. COSMETICS [Concomitant]
     Active Substance: COSMETICS
  10. MOMETASONE FUROATE [Concomitant]
     Active Substance: MOMETASONE FUROATE
  11. PREGABALIN [Concomitant]
     Active Substance: PREGABALIN
  12. ASPIRIN [Concomitant]
     Active Substance: ASPIRIN
     Dosage: UNK
  13. ALBUTEROL [Concomitant]
     Active Substance: ALBUTEROL
  14. ATORVASTATIN [Concomitant]
     Active Substance: ATORVASTATIN
  15. ACETYLCYSTEINE [Concomitant]
     Active Substance: ACETYLCYSTEINE
  16. NATRIUMFLUORIDE [Concomitant]
     Dosage: UNK
  17. NEXIUM I.V. [Concomitant]
     Active Substance: ESOMEPRAZOLE SODIUM
     Dosage: UNK
  18. CARBOXYPOLYMETHYLENE\HYALURONATE SODIUM [Concomitant]
     Active Substance: CARBOXYPOLYMETHYLENE\HYALURONATE SODIUM
  19. AMITRIPTYLINE HYDROCHLORIDE [Concomitant]
     Active Substance: AMITRIPTYLINE HYDROCHLORIDE
  20. DIAZEPAM [Concomitant]
     Active Substance: DIAZEPAM
     Dosage: UNK
  21. BISOPROLOL FUMARATE [Concomitant]
     Active Substance: BISOPROLOL FUMARATE
  22. FERROUS GLUCONATE [Concomitant]
     Active Substance: FERROUS GLUCONATE
  23. NAPROXEN [Concomitant]
     Active Substance: NAPROXEN
  24. COLECALCIFEROL BENFEROL [Concomitant]
  25. LEVOTHYROXINE SODIUM [Concomitant]
     Active Substance: LEVOTHYROXINE SODIUM
  26. TRIAMCINOLONE ACETONIDE [Concomitant]
     Active Substance: TRIAMCINOLONE ACETONIDE
  27. BUTRANS [Concomitant]
     Active Substance: BUPRENORPHINE
  28. NITROGLYCERIN [Concomitant]
     Active Substance: NITROGLYCERIN
  29. EZETIMIBE [Concomitant]
     Active Substance: EZETIMIBE
  30. OFLOXACIN [Concomitant]
     Active Substance: OFLOXACIN
     Dosage: UNK
  31. MOMETASONE [Concomitant]
     Active Substance: MOMETASONE
  32. ASPIRIN [Concomitant]
     Active Substance: ASPIRIN
  33. ACETYLCYSTEINE;BROMELAINS;CALCIUM CARBONATE;CORDYCEPS SINENSIS;CURCUMA [Concomitant]
  34. ESOMEPRAZOLE [Concomitant]
     Active Substance: ESOMEPRAZOLE
  35. HYALURON [HYALURONATE SODIUM] [Concomitant]
  36. BISOPROLOL [Concomitant]
     Active Substance: BISOPROLOL\BISOPROLOL FUMARATE
  37. FERROGLUCON [Concomitant]
     Dosage: UNK
  38. NAPROXEN SODIUM [Concomitant]
     Active Substance: NAPROXEN\NAPROXEN SODIUM
     Dosage: UNK
  39. CHOLECALCIFEROL [Concomitant]
     Active Substance: CHOLECALCIFEROL
  40. LEVOTHYROXINE [Concomitant]
     Active Substance: LEVOTHYROXINE
  41. TRIAMCINOLONE ACETONIDE [Concomitant]
     Active Substance: TRIAMCINOLONE ACETONIDE
     Dosage: UNK
  42. BUPRENORPHINE [Concomitant]
     Active Substance: BUPRENORPHINE
     Dosage: UNK
  43. EZETIMIBE [Concomitant]
     Active Substance: EZETIMIBE
     Dosage: UNK

REACTIONS (1)
  - Pneumococcal sepsis [Recovered/Resolved]

NARRATIVE: CASE EVENT DATE: 20231120
